FAERS Safety Report 6017156-X (Version None)
Quarter: 2008Q4

REPORT INFORMATION
  Report Type: 
  Country: None (occurrence: None)
  Receive Date: 20081223
  Receipt Date: 20081217
  Transmission Date: 20090506
  Serious: Yes (Hospitalization)
  Sender: FDA-Public Use
  Company Number: FR-BRISTOL-MYERS SQUIBB COMPANY-14374102

PATIENT
  Age: 36 Year
  Sex: Male

DRUGS (3)
  1. CETUXIMAB [Suspect]
     Indication: BILE DUCT CANCER
     Dosage: RECENT INFUSION ON 14AUG08-975 MG PER DAY
     Route: 042
     Dates: start: 20080730, end: 20080827
  2. ELOXATIN [Suspect]
     Indication: BILE DUCT CANCER
     Dosage: RECENT INFUSION ON 13AUG08- 195 MG PER DAY
     Route: 042
     Dates: start: 20080730, end: 20080827
  3. GEMZAR [Suspect]
     Indication: BILE DUCT CANCER
     Dosage: RECENT INFUSION ON 14AUG08-1960 MG PER DAY
     Route: 042
     Dates: start: 20080730, end: 20080828

REACTIONS (5)
  - ASCITES [None]
  - CATHETER RELATED INFECTION [None]
  - GENERAL PHYSICAL HEALTH DETERIORATION [None]
  - MALNUTRITION [None]
  - RENAL FAILURE ACUTE [None]
